FAERS Safety Report 25655337 (Version 1)
Quarter: 2025Q3

REPORT INFORMATION
  Report Type: Spontaneous
  Country: US (occurrence: None)
  Receive Date: 20250807
  Receipt Date: 20250807
  Transmission Date: 20251020
  Serious: Yes (Other)
  Sender: FDA-CTU
  Company Number: None

PATIENT
  Age: 35 Year
  Sex: Female
  Weight: 105.75 kg

DRUGS (5)
  1. FLUCONAZOLE [Suspect]
     Active Substance: FLUCONAZOLE
     Indication: Fungal infection
     Route: 048
     Dates: start: 20250806, end: 20250806
  2. METOPROLOL [Concomitant]
     Active Substance: METOPROLOL
  3. MIRENA [Concomitant]
     Active Substance: LEVONORGESTREL
  4. PANTOPRAZOLE [Concomitant]
     Active Substance: PANTOPRAZOLE
  5. Vaginal probiotic [Concomitant]

REACTIONS (3)
  - Adverse drug reaction [None]
  - Pollakiuria [None]
  - Enuresis [None]

NARRATIVE: CASE EVENT DATE: 20250807
